FAERS Safety Report 9949580 (Version 6)
Quarter: 2014Q4

REPORT INFORMATION
  Report Type: Spontaneous
  Country: GB (occurrence: GB)
  Receive Date: 20140304
  Receipt Date: 20141020
  Transmission Date: 20150529
  Serious: Yes (Other)
  Sender: FDA-Public Use
  Company Number: GB-ROCHE-1354994

PATIENT
  Sex: Female

DRUGS (2)
  1. LOPERAMIDE [Concomitant]
     Active Substance: LOPERAMIDE
  2. HERCEPTIN [Suspect]
     Active Substance: TRASTUZUMAB
     Indication: PRODUCT USED FOR UNKNOWN INDICATION
     Route: 058

REACTIONS (18)
  - Peptic ulcer [Unknown]
  - Erythema [Unknown]
  - Paraesthesia [Unknown]
  - Nausea [Unknown]
  - Pain in extremity [Unknown]
  - Hot flush [Not Recovered/Not Resolved]
  - Procedural pain [Unknown]
  - Vomiting [Recovered/Resolved]
  - Fatigue [Unknown]
  - Extravasation [Unknown]
  - Lower respiratory tract infection [Unknown]
  - Diarrhoea [Unknown]
  - Sensory disturbance [Unknown]
  - Limb discomfort [Unknown]
  - Asthenia [Unknown]
  - Nasal discomfort [Recovering/Resolving]
  - Ear infection [Unknown]
  - Hypoaesthesia [Unknown]
